FAERS Safety Report 7071098-X (Version None)
Quarter: 2010Q4

REPORT INFORMATION
  Report Type: 
  Country: None (occurrence: None)
  Receive Date: 20101027
  Receipt Date: 20101027
  Transmission Date: 20110411
  Serious: No
  Sender: FDA-Public Use
  Company Number: None

PATIENT
  Age: 62 Year
  Sex: Female
  Weight: 83.0083 kg

DRUGS (2)
  1. CIPROFLOXACIN HCL [Suspect]
     Indication: URINARY TRACT INFECTION
     Dosage: ONE TABLET PER DAY TWICE A DAY PO
     Route: 048
     Dates: start: 20100724, end: 20100728
  2. LEVAQUIN [Concomitant]

REACTIONS (1)
  - TENDON RUPTURE [None]
